FAERS Safety Report 10647063 (Version 1)
Quarter: 2014Q4

REPORT INFORMATION
  Report Type: Spontaneous
  Country: US (occurrence: US)
  Receive Date: 20141211
  Receipt Date: 20141211
  Transmission Date: 20150529
  Serious: No
  Sender: FDA-Public Use
  Company Number: US-INCYTE CORPORATION-2014IN003264

PATIENT
  Age: 71 Year
  Sex: Male

DRUGS (12)
  1. CITALOPRAM [Concomitant]
     Active Substance: CITALOPRAM HYDROBROMIDE
  2. GLIPIZIDE. [Concomitant]
     Active Substance: GLIPIZIDE
  3. FOLIC ACID. [Concomitant]
     Active Substance: FOLIC ACID
  4. INFLUENZA [Suspect]
     Active Substance: INFLUENZA VIRUS VACCINE
     Dosage: UNK
     Dates: start: 20141029
  5. VITAMIN B12 [Concomitant]
     Active Substance: CYANOCOBALAMIN
  6. JAKAFI [Suspect]
     Active Substance: RUXOLITINIB
     Dosage: 20 MG, BID
     Route: 048
  7. IRON [Concomitant]
     Active Substance: IRON
  8. VITAMIN D                          /00107901/ [Concomitant]
     Active Substance: ERGOCALCIFEROL
  9. LISINOPRIL. [Concomitant]
     Active Substance: LISINOPRIL
  10. HYDROXYUREA. [Concomitant]
     Active Substance: HYDROXYUREA
  11. BABY ASPIRIN [Concomitant]
     Active Substance: ASPIRIN
  12. METFORMIN [Concomitant]
     Active Substance: METFORMIN HYDROCHLORIDE

REACTIONS (2)
  - Platelet count decreased [Recovering/Resolving]
  - Injection site bruising [Recovering/Resolving]

NARRATIVE: CASE EVENT DATE: 20141022
